FAERS Safety Report 10853626 (Version 4)
Quarter: 2015Q2

REPORT INFORMATION
  Report Type: Spontaneous
  Country: SE (occurrence: SE)
  Receive Date: 20150223
  Receipt Date: 20150421
  Transmission Date: 20150821
  Serious: Yes (Hospitalization)
  Sender: FDA-Public Use
  Company Number: SE-JNJFOC-20150213724

PATIENT
  Age: 72 Year
  Sex: Male

DRUGS (10)
  1. PALEXIA [Interacting]
     Active Substance: TAPENTADOL HYDROCHLORIDE
     Indication: PAIN
     Route: 048
     Dates: start: 20141105, end: 2015
  2. PALEXIA [Interacting]
     Active Substance: TAPENTADOL HYDROCHLORIDE
     Indication: PAIN
     Dosage: CUMULATIVE DOSE 800 MG
     Route: 048
     Dates: start: 20141103, end: 20141104
  3. ZOLPIDEM [Interacting]
     Active Substance: ZOLPIDEM\ZOLPIDEM TARTRATE
     Indication: PRODUCT USED FOR UNKNOWN INDICATION
     Route: 048
  4. NASONEX [Concomitant]
     Active Substance: MOMETASONE FUROATE
     Indication: NASAL POLYPS
     Route: 065
     Dates: start: 2010
  5. ZOPICLONE [Suspect]
     Active Substance: ZOPICLONE
     Indication: PRODUCT USED FOR UNKNOWN INDICATION
     Dosage: CUMULATIVE DOSE 45 MG
     Route: 065
  6. PALEXIA [Interacting]
     Active Substance: TAPENTADOL HYDROCHLORIDE
     Indication: PAIN
     Route: 048
     Dates: start: 20141104, end: 20141105
  7. ZOPICLONE [Suspect]
     Active Substance: ZOPICLONE
     Indication: PRODUCT USED FOR UNKNOWN INDICATION
     Dosage: CUMULATIVE DOSE 45 MG
     Route: 065
  8. INNOVAIR [Concomitant]
     Active Substance: BECLOMETHASONE DIPROPIONATE\FORMOTEROL
     Indication: NASAL POLYPS
     Route: 065
     Dates: start: 2010
  9. WARAN [Concomitant]
     Active Substance: WARFARIN SODIUM
     Indication: PRODUCT USED FOR UNKNOWN INDICATION
     Route: 065
  10. NORSPAN [Concomitant]
     Active Substance: BUPRENORPHINE
     Indication: PAIN
     Route: 065
     Dates: start: 20141107

REACTIONS (7)
  - Poor quality sleep [Unknown]
  - Drug interaction [Recovered/Resolved]
  - Drug ineffective [Unknown]
  - Psychotic disorder [Unknown]
  - Aggression [Recovered/Resolved]
  - Confusional state [Recovered/Resolved]
  - Restlessness [Unknown]

NARRATIVE: CASE EVENT DATE: 201411
